FAERS Safety Report 8505324 (Version 4)
Quarter: 2012Q4

REPORT INFORMATION
  Report Type: 
  Country: JP (occurrence: JP)
  Receive Date: 20120412
  Receipt Date: 20120918
  Transmission Date: 20130627
  Serious: Yes (Hospitalization, Other)
  Sender: FDA-Public Use
  Company Number: JP-BAYER-2011-103741

PATIENT
  Age: 54 Year
  Sex: Male

DRUGS (3)
  1. NEXAVAR [Suspect]
     Indication: HEPATIC NEOPLASM MALIGNANT
     Dosage: 400 mg, QD
     Route: 048
     Dates: start: 20110818, end: 20111117
  2. NEXAVAR [Suspect]
     Indication: HEPATIC NEOPLASM MALIGNANT
     Dosage: 400 mg, QD
     Route: 048
     Dates: start: 20110908, end: 20111117
  3. NEXAVAR [Suspect]
     Indication: HEPATIC NEOPLASM MALIGNANT
     Dosage: 200 mg, QD
     Route: 048
     Dates: start: 20111208

REACTIONS (11)
  - Haemoglobin decreased [Recovering/Resolving]
  - Ascites [Not Recovered/Not Resolved]
  - Palmar-plantar erythrodysaesthesia syndrome [Recovering/Resolving]
  - Hypertension [Not Recovered/Not Resolved]
  - Diarrhoea [Recovering/Resolving]
  - Pain [Recovering/Resolving]
  - Liver function test abnormal [Recovering/Resolving]
  - Blood creatinine increased [Recovering/Resolving]
  - Erythema [Recovering/Resolving]
  - Oedema peripheral [Recovered/Resolved]
  - Feeling hot [Recovered/Resolved]
